FAERS Safety Report 23014961 (Version 2)
Quarter: 2024Q4

REPORT INFORMATION
  Report Type: Report from Study
  Country: MX (occurrence: MX)
  Receive Date: 20231002
  Receipt Date: 20241122
  Transmission Date: 20250114
  Serious: Yes (Other)
  Sender: NOVARTIS
  Company Number: MX-002147023-NVSC2023MX211457

PATIENT
  Sex: Female
  Weight: 65 kg

DRUGS (5)
  1. ENTRESTO [Suspect]
     Active Substance: SACUBITRIL\VALSARTAN
     Indication: Hypertension
     Dosage: 1 DOSAGE FORM (200 MG), BID (E MORE THAN 15 YEARS AGO)
     Route: 048
  2. ENTRESTO [Suspect]
     Active Substance: SACUBITRIL\VALSARTAN
     Dosage: 0.5 (100 MG) / 1/2 OF 200 MG, BID
     Route: 065
  3. INSULIN NOS [Concomitant]
     Active Substance: INSULIN NOS
     Indication: Diabetes mellitus
     Dosage: 20 ML IN THE MORNING / 30 ML AT NIGHT (INJECTABLE SOLUTION MORETHAN 30 YEARS AGO)
     Route: 030
  4. INSULIN LISPRO [Concomitant]
     Active Substance: INSULIN LISPRO
     Indication: Diabetes mellitus
     Dosage: 1 DOSAGE FORM (25 MG), QD (INJECTABLE SOLUTION)
     Route: 030
  5. EMPAGLIFLOZIN\LINAGLIPTIN [Concomitant]
     Active Substance: EMPAGLIFLOZIN\LINAGLIPTIN
     Indication: Diabetes mellitus
     Dosage: 1 DOSAGE FORM, (12.5 MG), QD (MORE THAN 30 YEARS AGO)
     Route: 048

REACTIONS (12)
  - Dementia Alzheimer^s type [Not Recovered/Not Resolved]
  - Cardiac disorder [Unknown]
  - Muscle spasms [Not Recovered/Not Resolved]
  - Poor peripheral circulation [Not Recovered/Not Resolved]
  - Blood glucose increased [Unknown]
  - Vertigo [Not Recovered/Not Resolved]
  - Vomiting [Unknown]
  - Dizziness [Unknown]
  - Memory impairment [Unknown]
  - Pain [Unknown]
  - Wrong technique in product usage process [Unknown]
  - Off label use [Unknown]

NARRATIVE: CASE EVENT DATE: 20120101
